FAERS Safety Report 21485396 (Version 1)
Quarter: 2022Q4

REPORT INFORMATION
  Report Type: Spontaneous
  Country: CN (occurrence: None)
  Receive Date: 20221020
  Receipt Date: 20221020
  Transmission Date: 20230113
  Serious: Yes (Other)
  Sender: FDA-Public Use
  Company Number: 2022A346919

PATIENT
  Sex: Male
  Weight: 16 kg

DRUGS (3)
  1. QUETIAPINE FUMARATE [Suspect]
     Active Substance: QUETIAPINE FUMARATE
     Indication: Obsessive-compulsive disorder
     Route: 048
     Dates: start: 20220912, end: 20220924
  2. SERTRALINE HYDROCHLORIDE [Suspect]
     Active Substance: SERTRALINE HYDROCHLORIDE
     Indication: Obsessive-compulsive disorder
     Route: 048
     Dates: start: 20220912, end: 20220924
  3. CHLORPHENIRAMINE MALEATE [Suspect]
     Active Substance: CHLORPHENIRAMINE MALEATE
     Indication: Hypersensitivity
     Route: 048
     Dates: start: 20220923, end: 20220925

REACTIONS (7)
  - Rash [Recovered/Resolved]
  - Pruritus [Recovered/Resolved]
  - Ecchymosis [Recovered/Resolved]
  - Condition aggravated [Unknown]
  - Erythema [Unknown]
  - Skin oedema [Unknown]
  - Skin warm [Unknown]

NARRATIVE: CASE EVENT DATE: 20220923
